FAERS Safety Report 11401794 (Version 1)
Quarter: 2015Q3

REPORT INFORMATION
  Report Type: Spontaneous
  Country: US (occurrence: None)
  Receive Date: 20150819
  Receipt Date: 20150819
  Transmission Date: 20151125
  Serious: Yes (Hospitalization, Other)
  Sender: FDA-Public Use
  Company Number: None

PATIENT
  Age: 71 Year
  Sex: Male
  Weight: 79.1 kg

DRUGS (1)
  1. LISINOPRIL. [Suspect]
     Active Substance: LISINOPRIL
     Indication: HYPERTENSION
     Route: 048
     Dates: start: 20141204, end: 20150330

REACTIONS (6)
  - Rash [None]
  - No therapeutic response [None]
  - Laryngeal oedema [None]
  - Angioedema [None]
  - Tracheostomy [None]
  - Dysphagia [None]

NARRATIVE: CASE EVENT DATE: 20150319
